FAERS Safety Report 8961320 (Version 1)
Quarter: 2012Q4

REPORT INFORMATION
  Report Type: 
  Country: US (occurrence: US)
  Receive Date: 20121212
  Receipt Date: 20121212
  Transmission Date: 20130627
  Serious: Yes (Hospitalization)
  Sender: FDA-Public Use
  Company Number: US-JHP PHARMACEUTICALS, LLC-JHP201200023

PATIENT
  Age: 38 Year
  Sex: Female

DRUGS (5)
  1. PITOCIN [Suspect]
     Dosage: UNK
     Dates: start: 20111220, end: 20111220
  2. CORIFOLLITROPIN  ALFA [Suspect]
     Indication: OVULATION INDUCTION
     Dosage: 150 ?g, single
     Route: 058
     Dates: start: 20110324, end: 20110324
  3. CORIFOLLITROPIN ALFA [Suspect]
     Indication: OVULATION INDUCTION
     Dosage: 300 IU, qd
     Route: 058
     Dates: start: 20110324, end: 20110329
  4. PRENATAL VITAMINS [Concomitant]
     Dosage: UNK
     Dates: start: 2009
  5. CALCIUM CARBONATE [Concomitant]
     Dosage: UNK
     Dates: start: 20110518

REACTIONS (2)
  - Foetal distress syndrome [Recovered/Resolved]
  - Exposure during pregnancy [Recovered/Resolved]
